FAERS Safety Report 5237573-5 (Version None)
Quarter: 2007Q1

REPORT INFORMATION
  Report Type: 
  Country: None (occurrence: None)
  Receive Date: 20070213
  Receipt Date: 20070209
  Transmission Date: 20070707
  Serious: Yes (Hospitalization)
  Sender: FDA-Public Use
  Company Number: DE-MERCK-0612DEU00020

PATIENT
  Age: 36 Year
  Sex: Male
  Weight: 78 kg

DRUGS (3)
  1. SINGULAIR [Suspect]
     Indication: ASTHMA
     Route: 048
     Dates: start: 20061027, end: 20061104
  2. ALBUTEROL SULFATE [Concomitant]
     Indication: ASTHMA
  3. BUDESONIDE [Concomitant]
     Indication: ASTHMA

REACTIONS (3)
  - DYSAESTHESIA [None]
  - HEADACHE [None]
  - SPEECH DISORDER [None]
